FAERS Safety Report 5981211-0 (Version None)
Quarter: 2008Q4

REPORT INFORMATION
  Report Type: 
  Country: None (occurrence: None)
  Receive Date: 20081205
  Receipt Date: 20081203
  Transmission Date: 20090506
  Serious: Yes (Other)
  Sender: FDA-Public Use
  Company Number: B0549204A

PATIENT
  Age: 85 Year
  Sex: Female

DRUGS (9)
  1. ZANTAC [Suspect]
     Indication: CARDIOMYOPATHY
     Dosage: 300MG PER DAY
     Route: 048
     Dates: start: 19971201
  2. ZYLORIC [Suspect]
     Indication: DRUG USE FOR UNKNOWN INDICATION
     Dosage: 300MG PER DAY
     Route: 048
     Dates: start: 19971201
  3. ZOLPIDEM [Suspect]
     Indication: CARDIOMYOPATHY
     Route: 048
     Dates: start: 19971201
  4. SEKISAN [Suspect]
     Indication: COUGH
     Dosage: 45ML PER DAY
     Route: 048
     Dates: start: 19980216
  5. SEGURIL [Suspect]
     Indication: CARDIOMYOPATHY
     Dosage: 40MG PER DAY
     Route: 048
     Dates: start: 19971201
  6. NITRADISC [Suspect]
     Indication: CARDIOMYOPATHY
     Dosage: 5MG PER DAY
     Dates: start: 19971201
  7. ACETYLCYSTEINE [Suspect]
     Indication: COUGH
     Dosage: 600MG PER DAY
     Route: 048
     Dates: start: 19980216
  8. FERO-GRADUMET [Suspect]
     Route: 048
     Dates: start: 19971201
  9. ASPIRIN [Suspect]
     Indication: CARDIOMYOPATHY
     Dosage: 200MG PER DAY
     Route: 048
     Dates: start: 19971201

REACTIONS (1)
  - STEVENS-JOHNSON SYNDROME [None]
